FAERS Safety Report 17730290 (Version 2)
Quarter: 2020Q2

REPORT INFORMATION
  Report Type: Spontaneous
  Country: AU (occurrence: AU)
  Receive Date: 20200430
  Receipt Date: 20200619
  Transmission Date: 20200714
  Serious: Yes (Other)
  Sender: FDA-Public Use
  Company Number: AU-AMGEN-AUSSP2020067116

PATIENT
  Age: 64 Year
  Sex: Female
  Weight: 47.6 kg

DRUGS (2)
  1. PROLIA [Suspect]
     Active Substance: DENOSUMAB
     Indication: OSTEOPOROSIS
     Dosage: 60 MILLIGRAM, Q6MO
     Route: 058
     Dates: start: 20180310, end: 20190910
  2. VAGIFEM [Concomitant]
     Active Substance: ESTRADIOL
     Indication: ATROPHIC VULVOVAGINITIS
     Dosage: 10 MICROGRAM, 2 TIMES/WK
     Dates: start: 2013

REACTIONS (20)
  - Cardiac disorder [Unknown]
  - Blood cholesterol increased [Unknown]
  - Eczema [Recovering/Resolving]
  - Hypogammaglobulinaemia [Not Recovered/Not Resolved]
  - Nerve compression [Unknown]
  - Ill-defined disorder [Not Recovered/Not Resolved]
  - Eyelid disorder [Not Recovered/Not Resolved]
  - Fatigue [Unknown]
  - Urinary tract infection [Recovered/Resolved]
  - Dizziness [Not Recovered/Not Resolved]
  - Herpes simplex [Unknown]
  - Cough [Unknown]
  - Costochondritis [Not Recovered/Not Resolved]
  - Nausea [Not Recovered/Not Resolved]
  - Irritable bowel syndrome [Unknown]
  - Antinuclear antibody increased [Unknown]
  - Drug reaction with eosinophilia and systemic symptoms [Unknown]
  - Oropharyngeal pain [Unknown]
  - Bone swelling [Unknown]
  - Rash [Unknown]

NARRATIVE: CASE EVENT DATE: 201809
